FAERS Safety Report 11282013 (Version 1)
Quarter: 2015Q3

REPORT INFORMATION
  Report Type: Spontaneous
  Country: CN (occurrence: CN)
  Receive Date: 20150718
  Receipt Date: 20150718
  Transmission Date: 20151125
  Serious: Yes (Hospitalization)
  Sender: FDA-Public Use
  Company Number: CN-JNJFOC-20150707140

PATIENT
  Age: 2 Year
  Sex: Male
  Weight: 12 kg

DRUGS (4)
  1. ZAIKE [Suspect]
     Active Substance: CEFACLOR
     Indication: BRONCHITIS
     Route: 048
     Dates: start: 20150102, end: 20150105
  2. IBUPROFEN. [Suspect]
     Active Substance: IBUPROFEN
     Indication: PYREXIA
     Route: 048
     Dates: start: 20150102, end: 20150105
  3. TYLENOL [Suspect]
     Active Substance: ACETAMINOPHEN
     Indication: PYREXIA
     Route: 048
     Dates: start: 20150102, end: 20150105
  4. XIAO ER SHUANG QING KE LI (TRADITIONAL CHINESE MEDICINE) [Concomitant]
     Indication: BRONCHITIS
     Route: 048
     Dates: start: 20150102, end: 20150105

REACTIONS (3)
  - Cough [None]
  - Leukopenia [Recovered/Resolved]
  - Cough [Unknown]

NARRATIVE: CASE EVENT DATE: 201501
